FAERS Safety Report 7709739-3 (Version None)
Quarter: 2011Q3

REPORT INFORMATION
  Report Type: 
  Country: None (occurrence: None)
  Receive Date: 20110825
  Receipt Date: 20110817
  Transmission Date: 20111222
  Serious: Yes (Hospitalization)
  Sender: FDA-Public Use
  Company Number: US-CEPHALON-2011004221

PATIENT
  Sex: Male
  Weight: 87 kg

DRUGS (12)
  1. TEMOZOLOMIDE [Suspect]
     Indication: GLIOBLASTOMA MULTIFORME
     Route: 048
     Dates: start: 20110620
  2. COLACE [Concomitant]
  3. ONDANSETRON [Concomitant]
     Dates: start: 20110620
  4. METOPROLOL [Concomitant]
  5. FAMOTIDINE [Concomitant]
  6. SIMVASTATIN [Concomitant]
  7. LEVEMIR [Concomitant]
     Dates: start: 20110620
  8. HUMALOG [Concomitant]
  9. ARSENIC TRIOXIDE [Suspect]
     Indication: GLIOBLASTOMA MULTIFORME
     Route: 041
     Dates: start: 20110620
  10. LISINOPRIL [Concomitant]
  11. DECADRON [Concomitant]
     Dates: start: 20110620
  12. ATIVAN [Concomitant]
     Dates: start: 20110804

REACTIONS (4)
  - DEHYDRATION [None]
  - RENAL FAILURE ACUTE [None]
  - ASTHENIA [None]
  - CONFUSIONAL STATE [None]
